FAERS Safety Report 5299142-0 (Version None)
Quarter: 2007Q2

REPORT INFORMATION
  Report Type: 
  Country: None (occurrence: None)
  Receive Date: 20070411
  Receipt Date: 20070411
  Transmission Date: 20071010
  Serious: Yes (Hospitalization)
  Sender: FDA-Public Use
  Company Number: None

PATIENT
  Age: 55 Year
  Sex: Female

DRUGS (25)
  1. ABRAXANE [Suspect]
     Indication: OVARIAN CANCER RECURRENT
     Dosage: 518.0MG EVERY 28 DAYS
     Dates: start: 20070223
  2. CARBOPLATIN [Suspect]
     Indication: OVARIAN CANCER RECURRENT
     Dosage: 158.0MG D1,D8, D15
     Dates: start: 20070209
  3. WARFARIN SODIUM [Concomitant]
  4. ESTRADIOL PATCH [Concomitant]
  5. D5 / 0.45NS - KCL20MEQ [Concomitant]
  6. FLAGYL [Concomitant]
  7. VANCOMYCIN HCL [Concomitant]
  8. KT [Concomitant]
  9. LORAZEPAM [Concomitant]
  10. OXYCODONE-ACET [Concomitant]
  11. ACETAMINOPHEN TABLET (TYLENOL) [Concomitant]
  12. GENTAMICIN [Concomitant]
  13. CLINDAMYCIN [Concomitant]
  14. ZOFRAN [Concomitant]
  15. LORTAB [Concomitant]
  16. REGLAN [Concomitant]
  17. CALCIUM GLUCONATE [Concomitant]
  18. PROCRIT [Concomitant]
  19. PHENERGAN HCL [Concomitant]
  20. MAGNESUM SULFATE [Concomitant]
  21. DEMEROL [Concomitant]
  22. SOD CL [Concomitant]
  23. VINELLE (HRT) [Concomitant]
  24. MORPHINE [Concomitant]
  25. ERYTHROMYAIN [Concomitant]

REACTIONS (1)
  - CENTRAL LINE INFECTION [None]
